FAERS Safety Report 4339416-0 (Version None)
Quarter: 2004Q2

REPORT INFORMATION
  Report Type: 
  Country: None (occurrence: None)
  Receive Date: 20040412
  Receipt Date: 20040331
  Transmission Date: 20050107
  Serious: Yes (Other)
  Sender: FDA-Public Use
  Company Number: DE-JNJFOC-20040400143

PATIENT
  Age: 49 Year
  Sex: Female
  Weight: 62 kg

DRUGS (2)
  1. REMICADE [Suspect]
     Indication: DRUG USE FOR UNKNOWN INDICATION
     Dosage: 200 MG, INTRAVENOUS
     Route: 042
     Dates: start: 20031111
  2. CALCIMAGON D3 (CALCIUM CARBONATE) [Concomitant]

REACTIONS (2)
  - HEADACHE [None]
  - HYPERTENSIVE CRISIS [None]
